FAERS Safety Report 8160333-2 (Version None)
Quarter: 2012Q1

REPORT INFORMATION
  Report Type: 
  Country: None (occurrence: None)
  Receive Date: 20120223
  Receipt Date: 20120215
  Transmission Date: 20120608
  Serious: Yes (Hospitalization, Other)
  Sender: FDA-Public Use
  Company Number: US-ABBOTT-12P-163-0904848-00

PATIENT
  Sex: Male
  Weight: 90.8 kg

DRUGS (2)
  1. HUMIRA [Suspect]
     Indication: PSORIATIC ARTHROPATHY
     Dates: start: 20110801, end: 20110801
  2. HUMIRA [Suspect]
     Indication: PSORIASIS
     Dates: start: 20111201

REACTIONS (6)
  - PROCEDURAL PAIN [None]
  - THYROID CANCER [None]
  - NECK PAIN [None]
  - THYROID NEOPLASM [None]
  - HYPOAESTHESIA [None]
  - CARTILAGE INJURY [None]
